FAERS Safety Report 4528359-5 (Version None)
Quarter: 2004Q4

REPORT INFORMATION
  Report Type: 
  Country: None (occurrence: None)
  Receive Date: 20041130
  Receipt Date: 20040414
  Transmission Date: 20050328
  Serious: Yes (Other)
  Sender: FDA-Public Use
  Company Number: WAES 0404USA01478

PATIENT
  Age: 13 Year
  Sex: Male

DRUGS (6)
  1. CLINORIL [Suspect]
     Indication: IRITIS
     Dosage: 400 MG/DAILY/PO; 200 MG/DAILY/PO
     Route: 048
     Dates: start: 20040101, end: 20040101
  2. CLINORIL [Suspect]
     Indication: IRITIS
     Dosage: 400 MG/DAILY/PO; 200 MG/DAILY/PO
     Route: 048
     Dates: start: 20040101
  3. DDAVP [Concomitant]
  4. LUVOX [Concomitant]
  5. STRATTERA [Concomitant]
  6. CLONIDINE [Concomitant]

REACTIONS (1)
  - VASCULITIS [None]
